FAERS Safety Report 5482516-2 (Version None)
Quarter: 2007Q4

REPORT INFORMATION
  Report Type: 
  Country: None (occurrence: None)
  Receive Date: 20071011
  Receipt Date: 20070627
  Transmission Date: 20080405
  Serious: No
  Sender: FDA-Public Use
  Company Number: A0656620A

PATIENT
  Age: 60 Year
  Sex: Female

DRUGS (7)
  1. TYKERB [Suspect]
     Indication: BREAST CANCER
     Dosage: 5TAB PER DAY
     Route: 048
     Dates: start: 20070501
  2. PACLITAXEL [Concomitant]
  3. IMODIUM [Concomitant]
  4. KEPPRA [Concomitant]
  5. ATIVAN [Concomitant]
  6. PEPCID [Concomitant]
  7. COUMADIN [Concomitant]

REACTIONS (2)
  - BLOOD POTASSIUM DECREASED [None]
  - DIARRHOEA [None]
